FAERS Safety Report 21593576 (Version 4)
Quarter: 2022Q4

REPORT INFORMATION
  Report Type: Report from Study
  Country: CN (occurrence: CN)
  Receive Date: 20221115
  Receipt Date: 20221228
  Transmission Date: 20230113
  Serious: Yes (Hospitalization)
  Sender: FDA-Public Use
  Company Number: CN-002147023-NVSC2022CN252934

PATIENT
  Age: 69 Year
  Sex: Male
  Weight: 46 kg

DRUGS (17)
  1. SACUBITRIL\VALSARTAN [Suspect]
     Active Substance: SACUBITRIL\VALSARTAN
     Indication: Cardiac failure
     Dosage: 100 MG, BID
     Route: 048
     Dates: start: 20220923, end: 20221014
  2. SACUBITRIL\VALSARTAN [Suspect]
     Active Substance: SACUBITRIL\VALSARTAN
     Dosage: 150 MG, BID
     Route: 048
     Dates: start: 20221014
  3. DOXOFYLLINE [Concomitant]
     Active Substance: DOXOFYLLINE
     Indication: Chronic obstructive pulmonary disease
     Dosage: 0.2 G
     Route: 065
     Dates: start: 20221102, end: 20221103
  4. DOXOFYLLINE [Concomitant]
     Active Substance: DOXOFYLLINE
     Indication: Lower respiratory tract infection
  5. VALSARTAN [Concomitant]
     Active Substance: VALSARTAN
     Indication: Product used for unknown indication
     Dosage: 80 MG
     Route: 065
     Dates: start: 20220310, end: 20220922
  6. SACUBITRIL [Concomitant]
     Active Substance: SACUBITRIL
     Indication: Cardiac failure chronic
     Dosage: 0.1 G
     Route: 065
     Dates: start: 2019
  7. SPIRONOLACTONE [Concomitant]
     Active Substance: SPIRONOLACTONE
     Indication: Hypertension
     Dosage: 20 MG
     Route: 065
     Dates: start: 20220224, end: 20221206
  8. ESOMEPRAZOLE MAGNESIUM [Concomitant]
     Active Substance: ESOMEPRAZOLE MAGNESIUM
     Indication: Chronic obstructive pulmonary disease
     Dosage: 20 MG
     Route: 065
     Dates: start: 202111, end: 20221206
  9. IPRATROPIUM BROMIDE [Concomitant]
     Active Substance: IPRATROPIUM BROMIDE
     Indication: Chronic obstructive pulmonary disease
     Dosage: 0.5 MG
     Route: 065
     Dates: start: 20221102, end: 20221103
  10. IPRATROPIUM BROMIDE [Concomitant]
     Active Substance: IPRATROPIUM BROMIDE
     Indication: Lower respiratory tract infection
  11. CEFPIRAMIDE SODIUM [Concomitant]
     Active Substance: CEFPIRAMIDE SODIUM
     Indication: Chronic obstructive pulmonary disease
     Dosage: 2 G
     Route: 065
     Dates: start: 20221102, end: 20221103
  12. CEFPIRAMIDE SODIUM [Concomitant]
     Active Substance: CEFPIRAMIDE SODIUM
     Indication: Lower respiratory tract infection
  13. MOXIFLOXACIN HYDROCHLORIDE [Concomitant]
     Active Substance: MOXIFLOXACIN HYDROCHLORIDE
     Indication: Chronic obstructive pulmonary disease
     Dosage: 0.4 G
     Route: 065
     Dates: start: 20221102, end: 20221102
  14. MOXIFLOXACIN HYDROCHLORIDE [Concomitant]
     Active Substance: MOXIFLOXACIN HYDROCHLORIDE
     Indication: Lower respiratory tract infection
  15. AMBROXOL [Concomitant]
     Active Substance: AMBROXOL
     Indication: Chronic obstructive pulmonary disease
     Dosage: 30 MG
     Route: 065
     Dates: start: 20221102, end: 20221102
  16. AMBROXOL [Concomitant]
     Active Substance: AMBROXOL
     Indication: Lower respiratory tract infection
  17. PENICILLIN G [Concomitant]
     Active Substance: PENICILLIN G
     Indication: Skin test
     Dosage: 800000, U
     Route: 065
     Dates: start: 20221104, end: 20221104

REACTIONS (4)
  - Chronic obstructive pulmonary disease [Not Recovered/Not Resolved]
  - Lower respiratory tract infection [Not Recovered/Not Resolved]
  - Malignant gastric ulcer [Not Recovered/Not Resolved]
  - Gastric cancer [Not Recovered/Not Resolved]

NARRATIVE: CASE EVENT DATE: 20221104
